FAERS Safety Report 25820175 (Version 1)
Quarter: 2025Q3

REPORT INFORMATION
  Report Type: Spontaneous
  Country: GB (occurrence: GB)
  Receive Date: 20250919
  Receipt Date: 20250919
  Transmission Date: 20251020
  Serious: Yes (Other)
  Sender: ACCORD
  Company Number: None

PATIENT
  Age: 31 Year
  Sex: Female

DRUGS (2)
  1. SERTRALINE [Suspect]
     Active Substance: SERTRALINE HYDROCHLORIDE
     Indication: Product used for unknown indication
  2. ESTRADIOL, PROGESTERONE [Concomitant]
     Indication: Hormone replacement therapy

REACTIONS (2)
  - Bruxism [Not Recovered/Not Resolved]
  - Trichotillomania [Not Recovered/Not Resolved]
